FAERS Safety Report 12834303 (Version 1)
Quarter: 2016Q4

REPORT INFORMATION
  Report Type: Spontaneous
  Country: NO (occurrence: NO)
  Receive Date: 20161010
  Receipt Date: 20161010
  Transmission Date: 20170207
  Serious: Yes (Other)
  Sender: FDA-Public Use
  Company Number: NO-ALLERGAN-1671499US

PATIENT
  Sex: Female

DRUGS (1)
  1. ESCITALOPRAM OXALATE UNK [Suspect]
     Active Substance: ESCITALOPRAM OXALATE
     Indication: DEPRESSION
     Route: 065

REACTIONS (9)
  - Feelings of worthlessness [Unknown]
  - Depressed mood [Unknown]
  - Drug ineffective [Unknown]
  - Negative thoughts [Unknown]
  - Disturbance in attention [Unknown]
  - Suicidal behaviour [Unknown]
  - Decreased interest [Unknown]
  - Fatigue [Unknown]
  - Cognitive disorder [Unknown]
